FAERS Safety Report 10978207 (Version 1)
Quarter: 2015Q2

REPORT INFORMATION
  Report Type: Spontaneous
  Country: US (occurrence: None)
  Receive Date: 20150401
  Receipt Date: 20150401
  Transmission Date: 20150821
  Serious: Yes (Hospitalization)
  Sender: FDA-Public Use
  Company Number: None

PATIENT
  Age: 66 Year
  Sex: Male
  Weight: 65.3 kg

DRUGS (2)
  1. CARBOPLATIN. [Suspect]
     Active Substance: CARBOPLATIN
     Dates: end: 20150311
  2. TAXOL [Suspect]
     Active Substance: PACLITAXEL
     Dates: end: 20150311

REACTIONS (6)
  - Dyspepsia [None]
  - Regurgitation [None]
  - Haematemesis [None]
  - Chest pain [None]
  - Oesophageal carcinoma [None]
  - Dysphagia [None]

NARRATIVE: CASE EVENT DATE: 20150321
